FAERS Safety Report 9066490 (Version 1)
Quarter: 2013Q1

REPORT INFORMATION
  Report Type: Spontaneous
  Country: US (occurrence: US)
  Receive Date: 20130214
  Receipt Date: 20130214
  Transmission Date: 20140127
  Serious: Yes (Other)
  Sender: FDA-Public Use
  Company Number: US-PURDUE-USA-2013-0098630

PATIENT
  Sex: Male
  Weight: 122.45 kg

DRUGS (1)
  1. OXYCONTIN TABLETS [Suspect]
     Indication: BACK PAIN
     Dosage: 320 MG, Q12H
     Route: 048
     Dates: start: 2004

REACTIONS (4)
  - Atrial fibrillation [Unknown]
  - Arthralgia [Unknown]
  - Pneumonia [Unknown]
  - Gait disturbance [Unknown]
